FAERS Safety Report 11010549 (Version 4)
Quarter: 2016Q3

REPORT INFORMATION
  Report Type: Report from Study
  Country: US (occurrence: US)
  Receive Date: 20150410
  Receipt Date: 20160915
  Transmission Date: 20161109
  Serious: Yes (Other)
  Sender: FDA-Public Use
  Company Number: US-SA-2014SA141148

PATIENT
  Age: 61 Year
  Sex: Male

DRUGS (2)
  1. AUBAGIO [Suspect]
     Active Substance: TERIFLUNOMIDE
     Indication: MULTIPLE SCLEROSIS
     Dosage: FREQUENCY: MORNING.
     Route: 048
     Dates: start: 20141001
  2. AUBAGIO [Suspect]
     Active Substance: TERIFLUNOMIDE
     Indication: MULTIPLE SCLEROSIS
     Dosage: FREQUENCY: MORNING.
     Route: 048
     Dates: start: 20151122, end: 2016

REACTIONS (15)
  - Hypoaesthesia [Unknown]
  - Dizziness [Unknown]
  - Gait disturbance [Unknown]
  - Blood test abnormal [Unknown]
  - Rash [Unknown]
  - Photophobia [Unknown]
  - Condition aggravated [Not Recovered/Not Resolved]
  - Blindness transient [Recovered/Resolved]
  - Dyskinesia [Unknown]
  - Diarrhoea [Unknown]
  - Paraesthesia [Unknown]
  - Weight decreased [Unknown]
  - Cerebrovascular accident [Unknown]
  - Pain [Not Recovered/Not Resolved]
  - Limb discomfort [Unknown]

NARRATIVE: CASE EVENT DATE: 201503
